FAERS Safety Report 8872052 (Version 1)
Quarter: 2012Q4

REPORT INFORMATION
  Report Type: 
  Country: US (occurrence: US)
  Receive Date: 20121026
  Receipt Date: 20121026
  Transmission Date: 20130627
  Serious: No
  Sender: FDA-Public Use
  Company Number: US-AMGEN-USASP2012048832

PATIENT
  Age: 68 Year
  Sex: Male
  Weight: 95.24 kg

DRUGS (4)
  1. ENBREL [Suspect]
     Indication: PRODUCT USED FOR UNKNOWN INDICATION
     Dosage: 25 mg, 2 times/wk
     Route: 058
  2. ARTHROTEC [Concomitant]
     Dosage: 50 UNK, UNK
     Route: 048
  3. PREDNISONE [Concomitant]
     Dosage: 10 mg, UNK
     Route: 048
  4. ARAVA [Concomitant]
     Dosage: 10 mg, UNK
     Route: 048

REACTIONS (1)
  - Diplopia [Unknown]
